FAERS Safety Report 4800220-8 (Version None)
Quarter: 2005Q4

REPORT INFORMATION
  Report Type: 
  Country: None (occurrence: None)
  Receive Date: 20051017
  Receipt Date: 20050905
  Transmission Date: 20060501
  Serious: Yes (Hospitalization, Disabling)
  Sender: FDA-Public Use
  Company Number: 2005CG01473

PATIENT
  Age: 28975 Day
  Sex: Male
  Weight: 75 kg

DRUGS (16)
  1. IRESSA [Suspect]
     Indication: NON-SMALL CELL LUNG CANCER
     Route: 048
     Dates: start: 20041001, end: 20050901
  2. VINORELBINE [Concomitant]
     Indication: NON-SMALL CELL LUNG CANCER
  3. ANTINEOPLASTIC AGENTS [Concomitant]
     Indication: NON-SMALL CELL LUNG CANCER
  4. ZOMETA [Concomitant]
  5. CARDENSIEL [Concomitant]
  6. ELISOR [Concomitant]
     Route: 048
  7. SUCCINIMIDE [Concomitant]
  8. KARDEGIC [Concomitant]
  9. DOLIPRANE [Concomitant]
  10. ZOPICLONE [Concomitant]
  11. ATHYMIL [Concomitant]
  12. XANAX [Concomitant]
  13. LASILIX [Concomitant]
  14. DIAMICRON [Concomitant]
  15. OMIX [Concomitant]
  16. NITRGLYCERIN TRANSDERMAL SYSTEM [Concomitant]
     Route: 061

REACTIONS (5)
  - DISEASE PROGRESSION [None]
  - GENERAL PHYSICAL HEALTH DETERIORATION [None]
  - INCREASED BRONCHIAL SECRETION [None]
  - MONOPARESIS [None]
  - POLYNEUROPATHY [None]
